FAERS Safety Report 24180701 (Version 3)
Quarter: 2024Q4

REPORT INFORMATION
  Report Type: Spontaneous
  Country: DE (occurrence: DE)
  Receive Date: 20240806
  Receipt Date: 20241204
  Transmission Date: 20250115
  Serious: Yes (Life-Threatening, Hospitalization, Other)
  Sender: SANDOZ
  Company Number: DE-BRISTOL-MYERS SQUIBB COMPANY-2023-153108

PATIENT
  Age: 68 Year
  Sex: Male
  Weight: 80 kg

DRUGS (27)
  1. FLUOROURACIL [Suspect]
     Active Substance: FLUOROURACIL
     Indication: Oesophageal adenocarcinoma
     Dosage: FREQUENCY: Q2S
     Route: 042
     Dates: start: 20230726
  2. FLUOROURACIL [Suspect]
     Active Substance: FLUOROURACIL
     Dosage: FREQUENCY: Q2S
     Route: 042
     Dates: start: 20230726, end: 20240610
  3. CISPLATIN [Suspect]
     Active Substance: CISPLATIN
     Indication: Oesophageal adenocarcinoma
     Dosage: 158.4 MG, QM
     Route: 042
     Dates: start: 20230726, end: 20230921
  4. CISPLATIN [Suspect]
     Active Substance: CISPLATIN
     Dosage: 80 MG
     Route: 042
     Dates: start: 20230726, end: 20230921
  5. OXALIPLATIN [Suspect]
     Active Substance: OXALIPLATIN
     Indication: Oesophageal adenocarcinoma
     Dosage: FREQUENCY: Q2S
     Route: 042
     Dates: start: 20230726, end: 20230921
  6. OPDIVO [Suspect]
     Active Substance: NIVOLUMAB
     Indication: Oesophageal adenocarcinoma
     Dosage: FREQUENCY: Q2S/EVERY 2 WEEKS
     Route: 042
     Dates: start: 20230726, end: 20231214
  7. AMPHOTERICIN B [Concomitant]
     Active Substance: AMPHOTERICIN B
     Indication: Product used for unknown indication
     Dosage: 100 MG
     Route: 065
     Dates: start: 20231031
  8. APREPITANT [Concomitant]
     Active Substance: APREPITANT
     Dosage: 125 MG
     Route: 042
     Dates: start: 20230726, end: 20230921
  9. APREPITANT [Concomitant]
     Active Substance: APREPITANT
     Indication: Prophylaxis
     Dosage: 80 MG QD
     Route: 042
     Dates: start: 20230727, end: 20230728
  10. DEXAMETHASONE [Concomitant]
     Active Substance: DEXAMETHASONE
     Indication: Prophylaxis
     Dosage: 8MG
     Route: 042
     Dates: start: 20230824
  11. DEXAMETHASONE [Concomitant]
     Active Substance: DEXAMETHASONE
     Dosage: 8 MG QD
     Route: 042
     Dates: start: 20230726, end: 20230730
  12. DULOXETINE [Concomitant]
     Active Substance: DULOXETINE
     Indication: Product used for unknown indication
     Dosage: 30MG QD
     Route: 048
  13. GRANISETRON [Concomitant]
     Active Substance: GRANISETRON
     Dosage: 1 MG, QMO
     Route: 042
     Dates: start: 20230824
  14. GRANISETRON [Concomitant]
     Active Substance: GRANISETRON
     Indication: Prophylaxis
     Dosage: 1MG QD
     Route: 042
     Dates: start: 20230726, end: 20230730
  15. METAMIZOL [Concomitant]
     Active Substance: METAMIZOLE SODIUM
     Indication: Product used for unknown indication
     Dosage: 1G
     Route: 048
     Dates: start: 20230824, end: 20230920
  16. METAMIZOL [Concomitant]
     Active Substance: METAMIZOLE SODIUM
     Dosage: 500 MG
     Route: 048
     Dates: start: 20231018
  17. OXYCODONE [Concomitant]
     Active Substance: OXYCODONE
     Indication: Product used for unknown indication
     Dosage: 20 MG
     Route: 048
     Dates: start: 20230726, end: 20230824
  18. OXYCODONE [Concomitant]
     Active Substance: OXYCODONE
     Dosage: 30 MG, RETARD
     Route: 048
     Dates: start: 20230824, end: 20231030
  19. OXYCODONE [Concomitant]
     Active Substance: OXYCODONE
     Dosage: 40 MG, RETARD
     Route: 048
     Dates: start: 20231031
  20. OXYCODONE [Concomitant]
     Active Substance: OXYCODONE
     Indication: Product used for unknown indication
     Dosage: 5MG QD
     Route: 048
     Dates: start: 20230824
  21. PANTOPRAZOLE SODIUM [Concomitant]
     Active Substance: PANTOPRAZOLE SODIUM
     Indication: Prophylaxis
     Dosage: 40 MG QD
     Route: 048
     Dates: start: 20230727
  22. PREGABALIN [Concomitant]
     Active Substance: PREGABALIN
     Dosage: 100 MG
     Route: 048
     Dates: start: 20230921, end: 20231004
  23. PREGABALIN [Concomitant]
     Active Substance: PREGABALIN
     Dosage: 100 MG
     Route: 048
     Dates: start: 20231018
  24. PREGABALIN [Concomitant]
     Active Substance: PREGABALIN
     Indication: Product used for unknown indication
     Dosage: 150MG
     Route: 048
  25. PREGABALIN [Concomitant]
     Active Substance: PREGABALIN
     Dosage: 200 MG
     Route: 048
     Dates: start: 20231005, end: 20231017
  26. PREGABALIN [Concomitant]
     Active Substance: PREGABALIN
     Dosage: 300 MG
     Route: 048
     Dates: start: 20230920
  27. TAMSULOSIN [Concomitant]
     Active Substance: TAMSULOSIN
     Indication: Product used for unknown indication
     Dosage: 0.4MG QD
     Route: 048

REACTIONS (16)
  - Shock haemorrhagic [Unknown]
  - Tumour haemorrhage [Unknown]
  - Chest pain [Recovered/Resolved]
  - Dysphagia [Unknown]
  - Nephropathy toxic [Recovered/Resolved]
  - Tumour invasion [Unknown]
  - Oedema peripheral [Recovered/Resolved]
  - Micturition disorder [Recovered/Resolved]
  - Abdominal pain upper [Recovered/Resolved]
  - Weight decreased [Recovered/Resolved]
  - Pruritus [Not Recovered/Not Resolved]
  - Eczema [Recovering/Resolving]
  - Umbilical hernia [Not Recovered/Not Resolved]
  - Anaemia [Not Recovered/Not Resolved]
  - Stomatitis [Recovered/Resolved]
  - Skin toxicity [Not Recovered/Not Resolved]

NARRATIVE: CASE EVENT DATE: 20230824
